FAERS Safety Report 5026774-7 (Version None)
Quarter: 2006Q2

REPORT INFORMATION
  Report Type: 
  Country: None (occurrence: None)
  Receive Date: 20060608
  Receipt Date: 20060529
  Transmission Date: 20061013
  Serious: Yes (Other)
  Sender: FDA-Public Use
  Company Number: 2006069372

PATIENT
  Age: 36 Year
  Sex: Male
  Weight: 58.9676 kg

DRUGS (2)
  1. UNISOM [Suspect]
     Indication: INSOMNIA
     Dosage: 10 SLEEPGELS ONCE, ORAL
     Route: 048
     Dates: start: 20060501, end: 20060501
  2. DOXYCYCLINE [Concomitant]

REACTIONS (2)
  - INCORRECT DOSE ADMINISTERED [None]
  - LOSS OF CONSCIOUSNESS [None]
